FAERS Safety Report 7109801-2 (Version None)
Quarter: 2010Q4

REPORT INFORMATION
  Report Type: 
  Country: None (occurrence: None)
  Receive Date: 20101118
  Receipt Date: 20101103
  Transmission Date: 20110411
  Serious: Yes (Other)
  Sender: FDA-Public Use
  Company Number: PHHY2010US75739

PATIENT
  Sex: Female

DRUGS (8)
  1. FLUVIRIN [Suspect]
     Indication: IMMUNISATION
  2. VIVELLE-DOT [Suspect]
     Dosage: 0.05 MG
     Route: 062
  3. CIPRO [Suspect]
     Dosage: UNK
  4. MUCINEX [Suspect]
  5. DITROPAN XL [Concomitant]
     Dosage: 10 MG
  6. PROTONIX [Concomitant]
     Dosage: 40 MG
  7. CENESTIN [Concomitant]
     Dosage: UNK
  8. ANTIBIOTICS [Concomitant]

REACTIONS (12)
  - APHONIA [None]
  - CHEST DISCOMFORT [None]
  - COUGH [None]
  - DRUG INEFFECTIVE [None]
  - DYSPNOEA [None]
  - HOT FLUSH [None]
  - INFLUENZA LIKE ILLNESS [None]
  - MALAISE [None]
  - MUSCULOSKELETAL STIFFNESS [None]
  - NASOPHARYNGITIS [None]
  - PAIN [None]
  - SINUSITIS [None]
